FAERS Safety Report 8109562-4 (Version None)
Quarter: 2012Q1

REPORT INFORMATION
  Report Type: 
  Country: None (occurrence: None)
  Receive Date: 20120202
  Receipt Date: 20120130
  Transmission Date: 20120608
  Serious: Yes (Other)
  Sender: FDA-Public Use
  Company Number: GB-PFIZER INC-2010168916

PATIENT
  Age: 48 Year
  Sex: Female
  Weight: 73.8 kg

DRUGS (8)
  1. RAMIPRIL [Suspect]
     Dosage: UNK MG, UNK
     Route: 048
     Dates: start: 20101118
  2. LEVOTHYROXINE [Concomitant]
     Dosage: UNK
     Dates: start: 20100928, end: 20101123
  3. OILATUM EMOLLIENT [Concomitant]
     Dosage: UNK
     Dates: start: 20100803, end: 20100928
  4. RAMIPRIL [Suspect]
     Dosage: 1.25 MG, UNK
     Route: 048
     Dates: start: 20101206
  5. OILATUM EMOLLIENT [Concomitant]
     Dosage: UNK
     Dates: start: 20100928, end: 20101123
  6. LEVOTHYROXINE [Concomitant]
     Dosage: UNK
     Route: 065
     Dates: start: 20100803, end: 20100928
  7. OILATUM EMOLLIENT [Concomitant]
     Dosage: UNK
     Dates: start: 20101118
  8. LEVOTHYROXINE [Concomitant]
     Dosage: UNK
     Dates: start: 20101118

REACTIONS (3)
  - DRY THROAT [None]
  - PRURITUS [None]
  - THIRST [None]
